FAERS Safety Report 5249917-9 (Version None)
Quarter: 2007Q1

REPORT INFORMATION
  Report Type: 
  Country: None (occurrence: None)
  Receive Date: 20070228
  Receipt Date: 20060531
  Transmission Date: 20070707
  Serious: No
  Sender: FDA-Public Use
  Company Number: US-GLAXOSMITHKLINE-A0586897A

PATIENT
  Age: 24 Year
  Sex: Female
  Weight: 43.6 kg

DRUGS (2)
  1. LAMICTAL [Suspect]
     Dosage: 25MG PER DAY
     Route: 048
     Dates: start: 20051118, end: 20051125
  2. WELLBUTRIN XL [Concomitant]
     Dosage: 150MG PER DAY
     Route: 048
     Dates: start: 20040401

REACTIONS (2)
  - HERPES SIMPLEX [None]
  - LIP BLISTER [None]
